FAERS Safety Report 9260311 (Version 2)
Quarter: 2013Q2

REPORT INFORMATION
  Report Type: Spontaneous
  Country: FR (occurrence: FR)
  Receive Date: 20130429
  Receipt Date: 20130613
  Transmission Date: 20140414
  Serious: Yes (Life-Threatening, Hospitalization, Other)
  Sender: FDA-Public Use
  Company Number: PHHY2013FR040617

PATIENT
  Age: 69 Year
  Sex: Female
  Weight: 83 kg

DRUGS (6)
  1. TASIGNA [Suspect]
     Indication: CHRONIC MYELOID LEUKAEMIA
     Dosage: 400 MG, BID
     Route: 048
     Dates: start: 201206, end: 20130329
  2. LEVOTHYROX [Concomitant]
     Indication: HYPOTHYROIDISM
     Dosage: 75 UG
     Route: 048
     Dates: start: 20130227
  3. TARDYFERON [Concomitant]
     Indication: ANAEMIA
     Dosage: 160 MG
     Route: 048
     Dates: start: 20120312
  4. DIFFU K [Concomitant]
     Indication: HYPOKALAEMIA
     Dosage: 600 MG
     Route: 048
     Dates: start: 20130320
  5. ATENOLOL [Concomitant]
     Indication: ARRHYTHMIA
     Dosage: 100 MG
     Route: 048
     Dates: start: 20130313
  6. FUROSEMIDE [Concomitant]
     Dosage: 40 MG
     Route: 048

REACTIONS (21)
  - Cardiogenic shock [Recovering/Resolving]
  - Cardiac disorder [Recovering/Resolving]
  - Pulmonary oedema [Recovering/Resolving]
  - Renal failure acute [Recovering/Resolving]
  - Epiduritis [Recovered/Resolved]
  - Back pain [Recovered/Resolved]
  - Ischaemic cardiomyopathy [Recovered/Resolved]
  - Sense of oppression [Unknown]
  - Cardiac failure acute [Recovered/Resolved]
  - Bradycardia [Recovered/Resolved]
  - Syncope [Unknown]
  - Palpitations [Unknown]
  - Fatigue [Unknown]
  - Hyperhidrosis [Unknown]
  - Dyspnoea [Unknown]
  - Dizziness [Unknown]
  - Pain in extremity [Unknown]
  - Pain in jaw [Unknown]
  - Anxiety [Unknown]
  - Plasma cell myeloma [Not Recovered/Not Resolved]
  - Monoclonal gammopathy [Not Recovered/Not Resolved]
